FAERS Safety Report 10958398 (Version 3)
Quarter: 2015Q2

REPORT INFORMATION
  Report Type: Spontaneous
  Country: GB (occurrence: GB)
  Receive Date: 20150326
  Receipt Date: 20150416
  Transmission Date: 20150821
  Serious: Yes (Hospitalization)
  Sender: FDA-Public Use
  Company Number: GB-GLAXOSMITHKLINE-GB2015036473

PATIENT
  Age: 71 Year
  Sex: Male
  Weight: 86.9 kg

DRUGS (10)
  1. SALBUTAMOL SULPHATE [Suspect]
     Active Substance: ALBUTEROL SULFATE
     Indication: CHRONIC OBSTRUCTIVE PULMONARY DISEASE
     Route: 055
     Dates: start: 20141216, end: 20150212
  2. ATENOLOL. [Concomitant]
     Active Substance: ATENOLOL
  3. GLYCERYL TRINITRATE [Concomitant]
     Active Substance: NITROGLYCERIN
  4. ACLIDINIUM [Concomitant]
     Active Substance: ACLIDINIUM BROMIDE
  5. SERETIDE [Concomitant]
     Active Substance: FLUTICASONE FUROATE\SALMETEROL XINAFOATE
     Route: 065
  6. SERETIDE [Concomitant]
     Active Substance: FLUTICASONE FUROATE\SALMETEROL XINAFOATE
     Route: 065
  7. ATORVASTATIN [Concomitant]
     Active Substance: ATORVASTATIN
  8. ASPIRIN. [Concomitant]
     Active Substance: ASPIRIN
  9. ISOSORBIDE [Concomitant]
     Active Substance: ISOSORBIDE
  10. CLOPIDOGREL [Concomitant]
     Active Substance: CLOPIDOGREL BISULFATE

REACTIONS (6)
  - Infection [Unknown]
  - Product substitution issue [Unknown]
  - Foreign body [Unknown]
  - Chronic obstructive pulmonary disease [Recovered/Resolved]
  - Incorrect dose administered by device [Unknown]
  - Product quality issue [Unknown]

NARRATIVE: CASE EVENT DATE: 20150203
